FAERS Safety Report 7783620-6 (Version None)
Quarter: 2011Q3

REPORT INFORMATION
  Report Type: 
  Country: None (occurrence: None)
  Receive Date: 20110928
  Receipt Date: 20110211
  Transmission Date: 20111222
  Serious: No
  Sender: FDA-Public Use
  Company Number: US-MYLANLABS-2011S1003124

PATIENT
  Age: 86 Year
  Sex: Male
  Weight: 72.58 kg

DRUGS (6)
  1. NITRGLYCERIN TRANSDERMAL SYSTEM [Suspect]
     Indication: BLOOD PRESSURE INCREASED
     Dosage: CHANGED Q.D.
     Route: 062
     Dates: start: 20080101
  2. AMLODIPINE [Concomitant]
     Indication: BLOOD PRESSURE INCREASED
     Dates: start: 20110101
  3. ALPHAGAN P [Concomitant]
     Indication: GLAUCOMA
     Dosage: 2 DROPS PER EYE
     Route: 047
  4. FLOMAX [Concomitant]
     Indication: BENIGN PROSTATIC HYPERPLASIA
  5. LISINOPRIL [Concomitant]
     Indication: BLOOD PRESSURE INCREASED
  6. ATENOLOL [Concomitant]
     Indication: BLOOD PRESSURE INCREASED

REACTIONS (3)
  - APPLICATION SITE ERYTHEMA [None]
  - APPLICATION SITE PAIN [None]
  - APPLICATION SITE PRURITUS [None]
